FAERS Safety Report 4612258-4 (Version None)
Quarter: 2005Q1

REPORT INFORMATION
  Report Type: 
  Country: None (occurrence: None)
  Receive Date: 20050316
  Receipt Date: 20050224
  Transmission Date: 20050727
  Serious: Yes (Other)
  Sender: FDA-Public Use
  Company Number: US_0410106336

PATIENT
  Age: 36 Year
  Sex: Male
  Weight: 90 kg

DRUGS (7)
  1. ZYPREXA [Suspect]
     Indication: SCHIZOPHRENIA, PARANOID TYPE
     Dosage: 15 MG AT BEDTIME
     Dates: start: 19990201, end: 20020712
  2. TOPAMAX [Concomitant]
  3. QUETIAPINE [Concomitant]
  4. RISPERIDONE [Concomitant]
  5. DEPAKOTE [Concomitant]
  6. LIPITOR [Concomitant]
  7. PRILOSEC (OMEPRAZOLE RATIOPHARM) [Concomitant]

REACTIONS (15)
  - ANORECTAL DISORDER [None]
  - CHRONIC OBSTRUCTIVE PULMONARY DISEASE [None]
  - DIABETES MELLITUS INSULIN-DEPENDENT [None]
  - DIABETIC NEUROPATHY [None]
  - GLYCOSURIA [None]
  - HAEMATURIA [None]
  - HYPERCHOLESTEROLAEMIA [None]
  - HYPERTENSION [None]
  - HYPOGLYCAEMIA [None]
  - KETOACIDOSIS [None]
  - OEDEMA PERIPHERAL [None]
  - ONYCHOMYCOSIS [None]
  - PANCREATITIS [None]
  - RECTAL HAEMORRHAGE [None]
  - TREATMENT NONCOMPLIANCE [None]
